FAERS Safety Report 4452353-6 (Version None)
Quarter: 2004Q3

REPORT INFORMATION
  Report Type: 
  Country: None (occurrence: None)
  Receive Date: 20040916
  Receipt Date: 20040903
  Transmission Date: 20050211
  Serious: No
  Sender: FDA-Public Use
  Company Number: 2004CG01803

PATIENT
  Sex: Female

DRUGS (1)
  1. NAROPIN [Suspect]
     Indication: LOCAL ANAESTHESIA

REACTIONS (2)
  - ANAESTHETIC COMPLICATION [None]
  - CAUDA EQUINA SYNDROME [None]
